FAERS Safety Report 7849944-9 (Version None)
Quarter: 2011Q4

REPORT INFORMATION
  Report Type: 
  Country: None (occurrence: None)
  Receive Date: 20111025
  Receipt Date: 20111025
  Transmission Date: 20120403
  Serious: Yes (Hospitalization)
  Sender: FDA-Public Use
  Company Number: None

PATIENT
  Age: 57 Year
  Sex: Male
  Weight: 105.5 kg

DRUGS (1)
  1. DOXYCYCLINE [Suspect]
     Indication: SINUSITIS
     Dosage: 100 MG BID PO
     Route: 048
     Dates: start: 20110930, end: 20110930

REACTIONS (3)
  - DYSPNOEA [None]
  - RASH [None]
  - URTICARIA [None]
